FAERS Safety Report 9960735 (Version 1)
Quarter: 2014Q1

REPORT INFORMATION
  Report Type: Spontaneous
  Country: US (occurrence: None)
  Receive Date: 20140228
  Receipt Date: 20140228
  Transmission Date: 20141002
  Serious: Yes (Other)
  Sender: FDA-Public Use
  Company Number: 2200464

PATIENT
  Age: 51 Year
  Sex: Female

DRUGS (3)
  1. GEMCITABINE HYDROCHLORIDE [Suspect]
     Indication: BLADDER TRANSITIONAL CELL CARCINOMA
  2. CISPLATIN [Suspect]
     Indication: BLADDER TRANSITIONAL CELL CARCINOMA
  3. MITOMYCIN [Suspect]
     Indication: BLADDER TRANSITIONAL CELL CARCINOMA

REACTIONS (9)
  - Cystitis-like symptom [None]
  - Thrombocytopenia [None]
  - Haematuria [None]
  - Dysuria [None]
  - Pollakiuria [None]
  - Bladder wall calcification [None]
  - Bladder granuloma [None]
  - Bladder fibrosis [None]
  - Cystitis noninfective [None]
